FAERS Safety Report 7985075-5 (Version None)
Quarter: 2011Q4

REPORT INFORMATION
  Report Type: 
  Country: None (occurrence: None)
  Receive Date: 20111216
  Receipt Date: 20101117
  Transmission Date: 20120403
  Serious: No
  Sender: FDA-Public Use
  Company Number: US-MYLANLABS-2010S1021195

PATIENT
  Age: 77 Year
  Sex: Female
  Weight: 58.97 kg

DRUGS (5)
  1. VICODIN [Concomitant]
  2. COZAAR [Concomitant]
  3. DUONEB [Concomitant]
  4. PROPRANOLOL HYDROCHLORIDE [Suspect]
     Indication: ATRIAL FIBRILLATION
     Route: 048
  5. NORVASC [Concomitant]

REACTIONS (4)
  - MOUTH ULCERATION [None]
  - FOREIGN BODY [None]
  - OROPHARYNGEAL PAIN [None]
  - THROAT IRRITATION [None]
